FAERS Safety Report 6849256-6 (Version None)
Quarter: 2010Q3

REPORT INFORMATION
  Report Type: 
  Country: None (occurrence: None)
  Receive Date: 20100716
  Receipt Date: 20080709
  Transmission Date: 20110219
  Serious: No
  Sender: FDA-Public Use
  Company Number: US-PFIZER INC-2007080908

PATIENT
  Sex: Female
  Weight: 68 kg

DRUGS (4)
  1. CHANTIX [Suspect]
     Indication: SMOKING CESSATION THERAPY
     Route: 048
     Dates: start: 20060801, end: 20060801
  2. LORTAB [Concomitant]
  3. KLONOPIN [Concomitant]
  4. AMBIEN [Concomitant]

REACTIONS (3)
  - DRUG DISPENSING ERROR [None]
  - DYSPNOEA [None]
  - EMOTIONAL DISORDER [None]
